FAERS Safety Report 8533247 (Version 2)
Quarter: 2013Q4

REPORT INFORMATION
  Report Type: Spontaneous
  Country: US (occurrence: US)
  Receive Date: 20120427
  Receipt Date: 20131205
  Transmission Date: 20140711
  Serious: Yes (Death, Hospitalization)
  Sender: FDA-Public Use
  Company Number: US-BAYER-2012-040042

PATIENT
  Age: 34 Year
  Sex: Female
  Weight: 58.96 kg

DRUGS (4)
  1. OCELLA [Suspect]
     Indication: CONTRACEPTION
     Dosage: UNK
     Dates: start: 2009, end: 2010
  2. ATIVAN [Concomitant]
  3. DILANTIN [Concomitant]
  4. FENTANYL [Concomitant]

REACTIONS (1)
  - Cerebrovascular accident [Fatal]
